FAERS Safety Report 19366864 (Version 3)
Quarter: 2021Q4

REPORT INFORMATION
  Report Type: Spontaneous
  Country: US (occurrence: US)
  Receive Date: 20210603
  Receipt Date: 20211014
  Transmission Date: 20220303
  Serious: No
  Sender: FDA-Public Use
  Company Number: US-PFIZER INC-2021503457

PATIENT
  Age: 64 Year
  Sex: Female
  Weight: 62.13 kg

DRUGS (4)
  1. LYRICA [Suspect]
     Active Substance: PREGABALIN
     Indication: Fibromyalgia
     Dosage: 150 MG, 2X/DAY
     Route: 048
  2. DIVALPROEX SODIUM [Concomitant]
     Active Substance: DIVALPROEX SODIUM
     Indication: Schizoaffective disorder
     Dosage: 500 MG (DAILY 500MG 1 TAB)
  3. SEROQUEL [Concomitant]
     Active Substance: QUETIAPINE FUMARATE
     Indication: Major depression
     Dosage: 400 MG, DAILY (DAILY 400MG 1TAB)
  4. EFFEXOR [Concomitant]
     Active Substance: VENLAFAXINE HYDROCHLORIDE
     Indication: Major depression
     Dosage: 150 MG, DAILY (DAILY 150MG 2TAB)

REACTIONS (2)
  - Visual impairment [Unknown]
  - Memory impairment [Unknown]

NARRATIVE: CASE EVENT DATE: 20200101
